FAERS Safety Report 8769678 (Version 1)
Quarter: 2012Q4

REPORT INFORMATION
  Report Type: 
  Country: US (occurrence: US)
  Receive Date: 20120907
  Receipt Date: 20120907
  Transmission Date: 20130627
  Serious: Yes (Hospitalization)
  Sender: FDA-Public Use
  Company Number: US-AMGEN-USASP2012054851

PATIENT

DRUGS (3)
  1. ARANESP [Suspect]
     Indication: PERITONEAL DIALYSIS
     Dates: end: 20120815
  2. ARANESP [Suspect]
  3. EPOGEN [Suspect]
     Indication: HAEMODIALYSIS
     Dates: start: 20120815

REACTIONS (2)
  - Hallucination, visual [Unknown]
  - Rash [Unknown]
